FAERS Safety Report 7355450-0 (Version None)
Quarter: 2011Q1

REPORT INFORMATION
  Report Type: 
  Country: None (occurrence: None)
  Receive Date: 20110316
  Receipt Date: 20110314
  Transmission Date: 20110831
  Serious: Yes (Death, Hospitalization)
  Sender: FDA-Public Use
  Company Number: JP-BAYER-2011-001856

PATIENT
  Age: 66 Year
  Sex: Male
  Weight: 70 kg

DRUGS (12)
  1. OMEPRAZOLE [Concomitant]
     Indication: GASTRITIS
     Dosage: 20 MG, BID
     Route: 065
  2. MOSAPRIDE CITRATE [Concomitant]
     Indication: GASTRITIS
     Dosage: 2.5 MG, TID
     Route: 065
     Dates: end: 20101221
  3. MUCOPOLYSACCHARIDE POLYSULFURIC ACID ESTER [Concomitant]
     Indication: PROPHYLAXIS
     Dosage: UNK
     Route: 061
     Dates: start: 20101012, end: 20101220
  4. GLYCYRON [Concomitant]
     Indication: HEPATIC CIRRHOSIS
     Dosage: 2 DF, TID
     Route: 048
  5. LOPERAMIDE HYDROCHLORIDE [Concomitant]
     Indication: DIARRHOEA
     Dosage: 1 MG, BID
     Route: 048
     Dates: start: 20101012, end: 20101015
  6. PROHEPARUM [Concomitant]
     Indication: HEPATIC CIRRHOSIS
     Dosage: 1 DF, TID
     Route: 048
  7. ALBUMIN TANNATE [Concomitant]
     Indication: DIARRHOEA
     Dosage: 1 MG, TID
     Route: 048
     Dates: start: 20100901, end: 20101011
  8. ALBUMIN TANNATE [Concomitant]
     Dosage: 1 GM, TID
     Route: 048
     Dates: start: 20101016, end: 20101019
  9. LOPERAMIDE HYDROCHLORIDE [Concomitant]
     Dosage: 1 MG, BID
     Route: 048
     Dates: start: 20101019, end: 20101205
  10. FUROSEMIDE [Concomitant]
     Indication: ASCITES
     Dosage: 20 MG, QD
     Route: 065
     Dates: end: 20101205
  11. SPIRONOLACTONE [Concomitant]
     Indication: ASCITES
     Dosage: 50 MG, QD
     Dates: end: 20101205
  12. NEXAVAR [Suspect]
     Indication: HEPATIC NEOPLASM MALIGNANT
     Dosage: 400 MG, BID
     Route: 048
     Dates: start: 20101004, end: 20101130

REACTIONS (2)
  - ASCITES [None]
  - HEPATIC FAILURE [None]
